FAERS Safety Report 6236914-X (Version None)
Quarter: 2009Q2

REPORT INFORMATION
  Report Type: 
  Country: None (occurrence: None)
  Receive Date: 20090617
  Receipt Date: 20080221
  Transmission Date: 20091009
  Serious: No
  Sender: FDA-Public Use
  Company Number: 272656

PATIENT
  Age: 82 Year
  Sex: Female

DRUGS (7)
  1. LEVEMIR [Suspect]
     Indication: TYPE 1 DIABETES MELLITUS
     Dosage: SUBCUTANEOUS
     Route: 058
  2. LEVOXYL [Concomitant]
  3. EVISTA [Concomitant]
  4. VERAPAMIL [Concomitant]
  5. BENICAR [Concomitant]
  6. ASPIRIN [Concomitant]
  7. LIPITOR [Concomitant]

REACTIONS (1)
  - WEIGHT INCREASED [None]
